FAERS Safety Report 10141831 (Version 1)
Quarter: 2014Q2

REPORT INFORMATION
  Report Type: Spontaneous
  Country: IT (occurrence: IT)
  Receive Date: 20140429
  Receipt Date: 20140429
  Transmission Date: 20141212
  Serious: Yes (Hospitalization)
  Sender: FDA-Public Use
  Company Number: IT-MYLANLABS-2014S1009159

PATIENT
  Age: 36 Year
  Sex: Female

DRUGS (2)
  1. TRIAZOLAM [Suspect]
     Indication: PRODUCT USED FOR UNKNOWN INDICATION
     Dosage: 5 MG TOTAL
     Route: 048
     Dates: start: 20130804, end: 20130804
  2. CO EFFERALGAN [Suspect]
     Indication: PRODUCT USED FOR UNKNOWN INDICATION
     Dosage: 6 DF TOTAL
     Route: 048
     Dates: start: 20130804, end: 20130804

REACTIONS (5)
  - Loss of consciousness [Recovering/Resolving]
  - Miosis [Recovering/Resolving]
  - Sopor [Recovering/Resolving]
  - Drug abuse [Recovering/Resolving]
  - Overdose [Recovering/Resolving]
